FAERS Safety Report 25028744 (Version 2)
Quarter: 2025Q1

REPORT INFORMATION
  Report Type: Spontaneous
  Country: ES (occurrence: ES)
  Receive Date: 20250302
  Receipt Date: 20250328
  Transmission Date: 20250409
  Serious: Yes (Death, Other)
  Sender: SANOFI AVENTIS
  Company Number: ES-DialogSolutions-SAAVPROD-PI743052-C1

PATIENT
  Sex: Male

DRUGS (16)
  1. ZOLPIDEM TARTRATE [Suspect]
     Active Substance: ZOLPIDEM TARTRATE
  2. QUETIAPINE FUMARATE [Suspect]
     Active Substance: QUETIAPINE FUMARATE
     Indication: Suicide attempt
  3. VENLAFAXINE HYDROCHLORIDE [Suspect]
     Active Substance: VENLAFAXINE HYDROCHLORIDE
     Indication: Suicide attempt
  4. ALPRAZOLAM [Suspect]
     Active Substance: ALPRAZOLAM
  5. CLONAZEPAM [Interacting]
     Active Substance: CLONAZEPAM
  6. DIAZEPAM [Interacting]
     Active Substance: DIAZEPAM
  7. MORPHINE [Suspect]
     Active Substance: MORPHINE
  8. NAPROXEN [Suspect]
     Active Substance: NAPROXEN
  9. ONDANSETRON HYDROCHLORIDE [Suspect]
     Active Substance: ONDANSETRON HYDROCHLORIDE
  10. METOCLOPRAMIDE HYDROCHLORIDE [Suspect]
     Active Substance: METOCLOPRAMIDE HYDROCHLORIDE
  11. METHADONE [Suspect]
     Active Substance: METHADONE HYDROCHLORIDE
  12. NORDAZEPAM [Suspect]
     Active Substance: NORDAZEPAM
  13. FENTANYL [Interacting]
     Active Substance: FENTANYL
  14. FENTANYL [Interacting]
     Active Substance: FENTANYL
  15. FENTANYL [Interacting]
     Active Substance: FENTANYL
  16. PROPOFOL [Suspect]
     Active Substance: PROPOFOL

REACTIONS (7)
  - Drug abuse [Fatal]
  - Non-cardiogenic pulmonary oedema [Fatal]
  - Intentional product misuse [Fatal]
  - Drug interaction [Fatal]
  - Overdose [Fatal]
  - Toxicity to various agents [Fatal]
  - Drug dependence [Unknown]
